FAERS Safety Report 8724862 (Version 2)
Quarter: 2015Q2

REPORT INFORMATION
  Report Type: Report from Study
  Country: US (occurrence: US)
  Receive Date: 20120815
  Receipt Date: 20150626
  Transmission Date: 20150821
  Serious: Yes (Other)
  Sender: FDA-Public Use
  Company Number: US-ROCHE-1099902

PATIENT
  Age: 56 Year
  Sex: Female

DRUGS (2)
  1. LIDOCAINE. [Concomitant]
     Active Substance: LIDOCAINE
  2. ACTIVASE [Suspect]
     Active Substance: ALTEPLASE
     Indication: ACUTE MYOCARDIAL INFARCTION
     Dosage: ENTIRE DOSE OVER 90 MIN
     Route: 065
     Dates: start: 19920406

REACTIONS (4)
  - Ventricular fibrillation [Unknown]
  - Blood creatine phosphokinase MB increased [Unknown]
  - Supraventricular tachycardia [Unknown]
  - Atrioventricular block [Unknown]

NARRATIVE: CASE EVENT DATE: 19920406
